FAERS Safety Report 21328525 (Version 1)
Quarter: 2022Q3

REPORT INFORMATION
  Report Type: Spontaneous
  Country: TW (occurrence: TW)
  Receive Date: 20220913
  Receipt Date: 20220913
  Transmission Date: 20221027
  Serious: Yes (Hospitalization)
  Sender: FDA-Public Use
  Company Number: TW-SEBELA IRELAND LIMITED-2022SEB00064

PATIENT
  Age: 16 Year
  Sex: Female

DRUGS (2)
  1. AZATHIOPRINE [Suspect]
     Active Substance: AZATHIOPRINE
     Indication: Myasthenia gravis
     Dosage: 0.8 MG/KG, 1X/DAY
     Route: 065
     Dates: start: 202201, end: 2022
  2. AZATHIOPRINE [Suspect]
     Active Substance: AZATHIOPRINE
     Dosage: 1.6 MG/KG, 1X/DAY
     Route: 065
     Dates: start: 2022

REACTIONS (3)
  - Gastrointestinal ulcer [Recovered/Resolved]
  - Pancytopenia [Recovered/Resolved]
  - Colitis [Recovered/Resolved]
